FAERS Safety Report 11054291 (Version 1)
Quarter: 2015Q2

REPORT INFORMATION
  Report Type: Spontaneous
  Country: DE (occurrence: None)
  Receive Date: 20150420
  Receipt Date: 20150420
  Transmission Date: 20150821
  Serious: Yes (Other)
  Sender: FDA-Public Use
  Company Number: 2828850

PATIENT
  Age: 69 Year
  Sex: Female

DRUGS (8)
  1. CALCIUM FOLINATE [Suspect]
     Active Substance: LEUCOVORIN CALCIUM
     Indication: PANCREATIC CARCINOMA METASTATIC
     Dosage: CYCLICAL?
     Dates: start: 201102, end: 201110
  2. OXALIPLATIN. [Suspect]
     Active Substance: OXALIPLATIN
     Indication: PANCREATIC CARCINOMA METASTATIC
     Dosage: CYCLICAL?
     Dates: start: 201102, end: 201110
  3. FLUOROURACIL. [Suspect]
     Active Substance: FLUOROURACIL
     Indication: PANCREATIC CARCINOMA METASTATIC
     Dosage: CYCLICAL??
     Dates: start: 201102, end: 201110
  4. OXALIPLATIN. [Suspect]
     Active Substance: OXALIPLATIN
     Indication: METASTASES TO LIVER
     Dosage: CYCLICAL?
     Dates: start: 201102, end: 201110
  5. IRINOTECAN HYDROCHLORIDE. [Suspect]
     Active Substance: IRINOTECAN HYDROCHLORIDE
     Indication: METASTASES TO LIVER
     Dosage: CYCLICAL??
     Dates: start: 201102, end: 201110
  6. IRINOTECAN HYDROCHLORIDE. [Suspect]
     Active Substance: IRINOTECAN HYDROCHLORIDE
     Indication: PANCREATIC CARCINOMA METASTATIC
     Dosage: CYCLICAL??
     Dates: start: 201102, end: 201110
  7. FLUOROURACIL. [Suspect]
     Active Substance: FLUOROURACIL
     Indication: METASTASES TO LIVER
     Dosage: CYCLICAL??
     Dates: start: 201102, end: 201110
  8. CALCIUM FOLINATE [Suspect]
     Active Substance: LEUCOVORIN CALCIUM
     Indication: METASTASES TO LIVER
     Dosage: CYCLICAL?
     Dates: start: 201102, end: 201110

REACTIONS (7)
  - Recurrent cancer [None]
  - Toxicity to various agents [None]
  - Metastases to liver [None]
  - Neutropenia [None]
  - Mucosal inflammation [None]
  - Polyneuropathy [None]
  - Thrombocytopenia [None]
